FAERS Safety Report 9059620 (Version 1)
Quarter: 2013Q1

REPORT INFORMATION
  Report Type: Spontaneous
  Country: US (occurrence: None)
  Receive Date: 20130206
  Receipt Date: 20130206
  Transmission Date: 20140127
  Serious: Yes (Other)
  Sender: FDA-Public Use
  Company Number: None

PATIENT
  Age: 56 Year
  Sex: Male
  Weight: 68.5 kg

DRUGS (2)
  1. RANITIDINE [Suspect]
     Indication: PREMEDICATION
     Route: 042
     Dates: start: 20120531, end: 20120531
  2. RANITIDINE [Suspect]
     Indication: CHEMOTHERAPY
     Route: 042
     Dates: start: 20120531, end: 20120531

REACTIONS (5)
  - Hyperhidrosis [None]
  - Tachycardia [None]
  - Headache [None]
  - Flushing [None]
  - Ocular hyperaemia [None]
